FAERS Safety Report 5348137-7 (Version None)
Quarter: 2007Q2

REPORT INFORMATION
  Report Type: 
  Country: None (occurrence: None)
  Receive Date: 20070606
  Receipt Date: 20070530
  Transmission Date: 20071010
  Serious: Yes (Other)
  Sender: FDA-Public Use
  Company Number: US-BOEHRINGER INGELHEIM PHARMACEUTICALS, INC.-2007-BP-07463BP

PATIENT

DRUGS (3)
  1. VIRAMUNE [Suspect]
     Indication: HIV INFECTION
     Route: 048
  2. COMBIVIR [Suspect]
     Indication: HIV INFECTION
  3. TRIZIVIR [Suspect]
     Indication: HIV INFECTION

REACTIONS (1)
  - BLOOD TRIGLYCERIDES INCREASED [None]
